FAERS Safety Report 6455927-6 (Version None)
Quarter: 2009Q4

REPORT INFORMATION
  Report Type: 
  Country: None (occurrence: None)
  Receive Date: 20091125
  Receipt Date: 20091119
  Transmission Date: 20100525
  Serious: Yes (Hospitalization)
  Sender: FDA-Public Use
  Company Number: US-BIOGENIDEC-2009BI037678

PATIENT
  Age: 42 Year
  Sex: Female
  Weight: 72 kg

DRUGS (1)
  1. AVONEX [Suspect]
     Indication: MULTIPLE SCLEROSIS
     Route: 030
     Dates: start: 20081227

REACTIONS (7)
  - CONTUSION [None]
  - FACTOR V DEFICIENCY [None]
  - INCISION SITE PAIN [None]
  - INFUSION SITE PHLEBITIS [None]
  - INTERVERTEBRAL DISC PROTRUSION [None]
  - PAIN [None]
  - PULMONARY EMBOLISM [None]
